FAERS Safety Report 16885681 (Version 4)
Quarter: 2020Q2

REPORT INFORMATION
  Report Type: Spontaneous
  Country: US (occurrence: US)
  Receive Date: 20191004
  Receipt Date: 20200608
  Transmission Date: 20200713
  Serious: Yes (Death, Hospitalization)
  Sender: FDA-Public Use
  Company Number: US-ACTELION-A-NJ2019-196313

PATIENT
  Age: 79 Year
  Sex: Female
  Weight: 37.64 kg

DRUGS (7)
  1. AMLODIPINE [Concomitant]
     Active Substance: AMLODIPINE BESYLATE
  2. UPTRAVI [Suspect]
     Active Substance: SELEXIPAG
     Indication: PULMONARY ARTERIAL HYPERTENSION
     Dosage: 1600 MCG, BID
     Route: 048
  3. ADCIRCA [Concomitant]
     Active Substance: TADALAFIL
  4. UPTRAVI [Suspect]
     Active Substance: SELEXIPAG
     Dosage: 600 MCG, BID
     Route: 048
  5. WARFARIN [Concomitant]
     Active Substance: WARFARIN
  6. UPTRAVI [Suspect]
     Active Substance: SELEXIPAG
     Dosage: 400 MCG, BID
     Route: 048
     Dates: start: 201908
  7. UPTRAVI [Suspect]
     Active Substance: SELEXIPAG
     Dosage: UNK
     Route: 048
     Dates: start: 201807

REACTIONS (11)
  - Fall [Unknown]
  - Pneumonia streptococcal [Recovered/Resolved]
  - Sepsis [Recovered/Resolved]
  - Death [Fatal]
  - Vomiting [Unknown]
  - Food poisoning [Unknown]
  - Nausea [Unknown]
  - Face injury [Unknown]
  - Pneumonia [Recovered/Resolved]
  - Confusional state [Unknown]
  - Decreased appetite [Unknown]

NARRATIVE: CASE EVENT DATE: 201909
